FAERS Safety Report 14169368 (Version 1)
Quarter: 2017Q4

REPORT INFORMATION
  Report Type: Spontaneous
  Country: US (occurrence: US)
  Receive Date: 20171107
  Receipt Date: 20171107
  Transmission Date: 20180321
  Serious: Yes (Hospitalization)
  Sender: FDA-Public Use
  Company Number: None

PATIENT
  Age: 61 Year
  Sex: Female
  Weight: 54.45 kg

DRUGS (15)
  1. CALCITONIN SALMON. [Concomitant]
     Active Substance: CALCITONIN SALMON
  2. MILK THISTLE [Concomitant]
     Active Substance: DIETARY SUPPLEMENT\HERBALS\MILK THISTLE
  3. ATROVASTATIN [Concomitant]
     Active Substance: ATORVASTATIN CALCIUM
  4. CRANBERRY. [Concomitant]
     Active Substance: CRANBERRY
  5. VITAMIN D [Concomitant]
     Active Substance: CHOLECALCIFEROL
  6. QNASL [Concomitant]
     Active Substance: BECLOMETHASONE DIPROPIONATE
  7. FIBER [Concomitant]
     Active Substance: PSYLLIUM HUSK
  8. OMPERAZOLE [Concomitant]
     Active Substance: OMEPRAZOLE
  9. VITAMIN C [Concomitant]
     Active Substance: ASCORBIC ACID
  10. VITAMIN B COMPLEX [Concomitant]
     Active Substance: CYANOCOBALAMIN\DEXPANTHENOL\NIACINAMIDE\PYRIDOXINE HYDROCHLORIDE\RIBOFLAVIN 5^-PHOSPHATE SODIUM\THIAMINE HYDROCHLORIDE\VITAMIN B COMPLEX
  11. GARLIC. [Concomitant]
     Active Substance: GARLIC
  12. TYSABRI [Suspect]
     Active Substance: NATALIZUMAB
     Indication: MULTIPLE SCLEROSIS
     Dosage: ?          OTHER FREQUENCY:EVERY 28 DAYS; INTRAVENOUS (NOT OTHERWISE SPECIFIED)?
     Route: 042
     Dates: start: 20170928, end: 20171026
  13. VENTOLIN [Concomitant]
     Active Substance: ALBUTEROL SULFATE
  14. CALCIUM [Concomitant]
     Active Substance: CALCIUM
  15. METROPOLOL [Concomitant]
     Active Substance: METOPROLOL

REACTIONS (4)
  - Urticaria [None]
  - Flushing [None]
  - Dyspnoea [None]
  - Palpitations [None]

NARRATIVE: CASE EVENT DATE: 20171026
